FAERS Safety Report 7056804-2 (Version None)
Quarter: 2010Q4

REPORT INFORMATION
  Report Type: 
  Country: None (occurrence: None)
  Receive Date: 20101022
  Receipt Date: 20100412
  Transmission Date: 20110411
  Serious: Yes (Other)
  Sender: FDA-Public Use
  Company Number: US-ASTRAZENECA-2009SE13111

PATIENT
  Age: 15654 Day
  Sex: Male
  Weight: 106.6 kg

DRUGS (9)
  1. SEROQUEL [Suspect]
     Route: 048
     Dates: start: 20030108
  2. NEXIUM [Concomitant]
     Dates: start: 20030108
  3. PAXIL CR [Concomitant]
     Dates: start: 20030108
  4. DEPAKOTE [Concomitant]
     Dates: start: 20030108
  5. CYCLOBENZAPRINE [Concomitant]
     Dosage: 10
     Dates: start: 20030126
  6. PROTONIX [Concomitant]
     Dates: start: 20030218
  7. PROPOXYPHENE NAPSYLATE AND ACETAMINOPHEN [Concomitant]
     Dosage: 100
     Dates: start: 20030319
  8. LYRICA [Concomitant]
     Indication: NEUROPATHY PERIPHERAL
     Route: 048
     Dates: start: 20070222
  9. LYRICA [Concomitant]
     Indication: CONVULSION
     Route: 048
     Dates: start: 20070222

REACTIONS (2)
  - DIABETES MELLITUS [None]
  - NEUROPATHY PERIPHERAL [None]
